FAERS Safety Report 17444108 (Version 1)
Quarter: 2020Q1

REPORT INFORMATION
  Report Type: Spontaneous
  Country: CN (occurrence: CN)
  Receive Date: 20200221
  Receipt Date: 20200221
  Transmission Date: 20200409
  Serious: Yes (Other)
  Sender: FDA-Public Use
  Company Number: CN-UCBSA-2020006744

PATIENT
  Age: 37 Year
  Sex: Female
  Weight: 55 kg

DRUGS (12)
  1. MOUSE NERVE GROWTH FACTOR FOR INJECTION [Suspect]
     Active Substance: BETA-NERVE GROWTH FACTOR (MOUSE)
     Indication: NUTRITIONAL SUPPLEMENTATION
     Dosage: 18 MICROGRAM, ONCE DAILY (QD)
     Route: 030
     Dates: start: 20191101, end: 20191112
  2. SODIUM CHLORIDE. [Concomitant]
     Active Substance: SODIUM CHLORIDE
     Dosage: 500 MILLILITER, ONCE DAILY (QD)
     Route: 041
     Dates: start: 20191101, end: 20191113
  3. SODIUM CHLORIDE. [Concomitant]
     Active Substance: SODIUM CHLORIDE
     Dosage: 1 GRAM, ONCE DAILY (QD)
     Route: 041
     Dates: start: 20191101, end: 20191113
  4. SODIUM CHLORIDE. [Concomitant]
     Active Substance: SODIUM CHLORIDE
     Dosage: 500 MILLILITER, ONCE DAILY (QD)
     Route: 041
     Dates: start: 20191102, end: 20191112
  5. BUDESONIDE. [Suspect]
     Active Substance: BUDESONIDE
     Indication: COUGH
     Dosage: 2 MILLIGRAM, 2X/DAY (BID)
     Dates: start: 20191101, end: 20191111
  6. VINPOCETINE [Suspect]
     Active Substance: VINPOCETINE
     Indication: VASODILATATION
     Dosage: 30 MILLIGRAM, ONCE DAILY (QD)
     Route: 041
     Dates: start: 20191101, end: 20191113
  7. LEVETIRACETAM. [Suspect]
     Active Substance: LEVETIRACETAM
     Indication: SEIZURE
     Dosage: 0.5 GRAM, 2X/DAY (BID)
     Route: 048
     Dates: start: 20191101, end: 20191114
  8. IPRATROPIUM BROMIDE. [Suspect]
     Active Substance: IPRATROPIUM BROMIDE
     Indication: COUGH
     Dosage: 500 MICROGRAM, 2X/DAY (BID)
     Dates: start: 20191101, end: 20191111
  9. CINEPAZIDE MALEATE [Suspect]
     Active Substance: CINEPAZIDE MALEATE
     Indication: VASODILATATION
     Dosage: 320 MILLIGRAM, ONCE DAILY (QD)
     Route: 041
     Dates: start: 20191102, end: 20191112
  10. SODIUM CHLORIDE. [Concomitant]
     Active Substance: SODIUM CHLORIDE
     Indication: ELECTROLYTE SUBSTITUTION THERAPY
     Dosage: 10 MILLILITER, ONCE DAILY (QD)
     Route: 030
     Dates: start: 20191101, end: 20191112
  11. POTASSIUM CHLORIDE. [Concomitant]
     Active Substance: POTASSIUM CHLORIDE
     Indication: PRODUCT USED FOR UNKNOWN INDICATION
     Dosage: UNK
  12. SODIUM CHLORIDE. [Concomitant]
     Active Substance: SODIUM CHLORIDE
     Indication: SUPPLEMENTATION THERAPY
     Dosage: 10 MILLILITER, 2X/DAY (BID)
     Dates: start: 20191101, end: 20191111

REACTIONS (2)
  - Erythema [Recovering/Resolving]
  - Pruritus [Recovering/Resolving]

NARRATIVE: CASE EVENT DATE: 20191111
